FAERS Safety Report 8492179-X (Version None)
Quarter: 2012Q3

REPORT INFORMATION
  Report Type: 
  Country: None (occurrence: None)
  Receive Date: 20120706
  Receipt Date: 20120703
  Transmission Date: 20120928
  Serious: Yes (Other)
  Sender: FDA-Public Use
  Company Number: US-PFIZER INC-2012160362

PATIENT
  Sex: Female
  Weight: 54.4 kg

DRUGS (2)
  1. AMBIEN [Concomitant]
     Indication: INSOMNIA
     Dosage: 5 MG, DAILY
  2. CELEBREX [Suspect]
     Indication: ARTHRITIS
     Dosage: 200 MG, DAILY
     Dates: start: 20120501

REACTIONS (1)
  - PNEUMONIA [None]
